FAERS Safety Report 5073780-2 (Version None)
Quarter: 2006Q3

REPORT INFORMATION
  Report Type: 
  Country: None (occurrence: None)
  Receive Date: 20060808
  Receipt Date: 20050526
  Transmission Date: 20061208
  Serious: Yes (Death, Other)
  Sender: FDA-Public Use
  Company Number: PHEH2005US05993

PATIENT
  Age: 83 Year
  Sex: Female

DRUGS (16)
  1. ZOMETA [Suspect]
     Indication: METASTASES TO BONE
     Dosage: 4MG QMO
     Dates: start: 20021106, end: 20030625
  2. ZOMETA [Suspect]
     Dosage: 4MG QMO
     Route: 042
     Dates: start: 20011128, end: 20020320
  3. TENORMIN [Concomitant]
     Indication: HYPERTENSION
     Dates: start: 20050907
  4. POTASSIUM CHLORIDE [Concomitant]
     Indication: ELECTROLYTE IMBALANCE
     Dates: start: 20050506
  5. PREVACID [Concomitant]
     Indication: NAUSEA
     Dates: start: 20050506
  6. LASIX [Concomitant]
  7. CHONDROITIN W/GLUCOSAMINE [Concomitant]
     Indication: OSTEOARTHRITIS
     Dates: start: 20050506
  8. AREDIA [Suspect]
     Indication: METASTASES TO BONE
     Dates: start: 20041229, end: 20050401
  9. AREDIA [Suspect]
     Dosage: 90 MG, QMO
     Route: 042
     Dates: start: 20000411, end: 20011031
  10. COMPAZINE [Concomitant]
     Indication: NAUSEA
     Dates: start: 20050506
  11. RADIATION THERAPY [Concomitant]
     Indication: ARTHRALGIA
     Dosage: 3000CGY IN 10 FRACTIONS
     Dates: start: 20050104, end: 20050118
  12. RADIATION THERAPY [Concomitant]
     Dosage: 2000CGY IN 5 FRACTIONS
  13. LEXAPRO [Concomitant]
     Indication: DEPRESSION
     Dates: start: 20050701
  14. ALPRAZOLAM [Concomitant]
     Indication: ANXIETY
     Dates: start: 20050506
  15. ACETAMINOPHEN [Concomitant]
     Indication: PAIN
     Dates: start: 20050506
  16. MULTIVITAMIN [Concomitant]
     Indication: MEDICAL DIET
     Dates: start: 20050506

REACTIONS (10)
  - BONE DEBRIDEMENT [None]
  - BONE DISORDER [None]
  - INFECTION [None]
  - MALIGNANT NEOPLASM PROGRESSION [None]
  - ORAL SOFT TISSUE DISORDER [None]
  - OSTEONECROSIS [None]
  - SWELLING [None]
  - TOOTH DISORDER [None]
  - TOOTH EXTRACTION [None]
  - TOOTHACHE [None]
